FAERS Safety Report 4924791-6 (Version None)
Quarter: 2006Q1

REPORT INFORMATION
  Report Type: 
  Country: None (occurrence: None)
  Receive Date: 20060222
  Receipt Date: 20060209
  Transmission Date: 20060701
  Serious: No
  Sender: FDA-Public Use
  Company Number: 28500

PATIENT
  Age: 85 Year
  Sex: Female

DRUGS (3)
  1. ALDARA [Suspect]
     Indication: BASAL CELL CARCINOMA
     Dosage: 0.1 SACHET, 3 IN 1 WEEK(S)), TOPICAL
     Route: 061
     Dates: start: 20051102, end: 20060126
  2. SYNTHROID [Concomitant]
  3. UNSPECIFIED HIGH BLOOD PRESSURE MEDICATION [Concomitant]

REACTIONS (5)
  - APPLICATION SITE INFECTION [None]
  - APPLICATION SITE REACTION [None]
  - ECZEMA [None]
  - PSEUDOMONAS INFECTION [None]
  - SCAB [None]
